FAERS Safety Report 6079784-5 (Version None)
Quarter: 2009Q1

REPORT INFORMATION
  Report Type: 
  Country: None (occurrence: None)
  Receive Date: 20090217
  Receipt Date: 20090211
  Transmission Date: 20090719
  Serious: Yes (Death, Other)
  Sender: FDA-Public Use
  Company Number: PHBS2009FR00790

PATIENT
  Age: 32 Year
  Sex: Female

DRUGS (6)
  1. OCTREOTIDE ACETATE [Suspect]
     Indication: STEM CELL TRANSPLANT
  2. ENOXAPARIN SODIUM [Concomitant]
  3. ERYTHROMYCIN [Concomitant]
  4. AMLODIPINE [Concomitant]
  5. WARFARIN SODIUM [Concomitant]
  6. BETAMETHASONE [Concomitant]

REACTIONS (11)
  - CAESAREAN SECTION [None]
  - CARDIOPULMONARY FAILURE [None]
  - DISEASE PROGRESSION [None]
  - DRUG EXPOSURE DURING PREGNANCY [None]
  - GASTROINTESTINAL OBSTRUCTION [None]
  - HYPERTENSION [None]
  - INTERSTITIAL LUNG DISEASE [None]
  - NORMAL NEWBORN [None]
  - PERICARDITIS [None]
  - PREMATURE LABOUR [None]
  - PROTEINURIA [None]
